FAERS Safety Report 7285933-3 (Version None)
Quarter: 2011Q1

REPORT INFORMATION
  Report Type: 
  Country: None (occurrence: None)
  Receive Date: 20110210
  Receipt Date: 20110207
  Transmission Date: 20110831
  Serious: Yes (Other)
  Sender: FDA-Public Use
  Company Number: US-MERCK-1102USA00900

PATIENT

DRUGS (2)
  1. BONIVA [Suspect]
     Route: 065
  2. FOSAMAX [Suspect]
     Route: 048

REACTIONS (2)
  - OSTEONECROSIS OF JAW [None]
  - OSTEONECROSIS [None]
